FAERS Safety Report 15186096 (Version 1)
Quarter: 2018Q3

REPORT INFORMATION
  Report Type: Spontaneous
  Country: US (occurrence: US)
  Receive Date: 20180723
  Receipt Date: 20180723
  Transmission Date: 20181010
  Serious: No
  Sender: FDA-Public Use
  Company Number: US-EXELIXIS-CABO-18012243

PATIENT
  Sex: Female

DRUGS (2)
  1. CABOMETYX [Suspect]
     Active Substance: CABOZANTINIB S-MALATE
     Indication: RENAL ATROPHY
     Dosage: 60 MG, QD
     Route: 048
     Dates: end: 201701
  2. OPDIVO [Suspect]
     Active Substance: NIVOLUMAB

REACTIONS (3)
  - Skin ulcer [Unknown]
  - Acne [Unknown]
  - Alopecia [Unknown]
